FAERS Safety Report 8588814-8 (Version None)
Quarter: 2012Q3

REPORT INFORMATION
  Report Type: 
  Country: None (occurrence: None)
  Receive Date: 20120813
  Receipt Date: 20120806
  Transmission Date: 20120928
  Serious: Yes (Death)
  Sender: FDA-Public Use
  Company Number: NZ-JNJFOC-20120802649

PATIENT
  Age: 18 Month
  Sex: Female

DRUGS (2)
  1. ACETAMINOPHEN [Suspect]
     Indication: PYREXIA
     Dosage: 200 ML BOTTLE
     Route: 048
  2. ACETAMINOPHEN [Suspect]
     Indication: TEETHING
     Dosage: 200 ML BOTTLE
     Route: 048

REACTIONS (1)
  - HEPATOTOXICITY [None]
